FAERS Safety Report 5630992-4 (Version None)
Quarter: 2008Q1

REPORT INFORMATION
  Report Type: 
  Country: None (occurrence: None)
  Receive Date: 20080219
  Receipt Date: 20080207
  Transmission Date: 20080703
  Serious: Yes (Other)
  Sender: FDA-Public Use
  Company Number: CH-SANOFI-SYNTHELABO-A01200801515

PATIENT
  Sex: Female

DRUGS (7)
  1. ACETAMINOPHEN [Suspect]
     Indication: PAIN
     Dosage: VARIABLE DOSES TAKEN REGULARLY
     Route: 064
     Dates: end: 20070413
  2. PANTOZOL [Suspect]
     Indication: GASTROOESOPHAGEAL REFLUX DISEASE
     Dosage: UNK
     Route: 064
     Dates: end: 20070413
  3. MOTILIUM [Suspect]
     Indication: DYSPEPSIA
     Dosage: VARIABLE DOSES TAKEN REGULARLY
     Route: 064
     Dates: end: 20070413
  4. DICETEL [Suspect]
     Indication: DYSPEPSIA
     Dosage: IN RESERVE
     Route: 064
     Dates: end: 20070413
  5. LEXOTANIL [Suspect]
     Indication: ANXIETY DISORDER
     Dosage: UP TO 5 TABLETS (7.5 MG) DAILY
     Route: 064
     Dates: end: 20070413
  6. EFFEXOR [Suspect]
     Indication: DEPRESSION
     Route: 064
     Dates: start: 20060701, end: 20070413
  7. STILNOX [Suspect]
     Indication: SLEEP DISORDER
     Dosage: USULLY 1TABLET /DAY UP TO 4 TABLETS BEFORE SLEEP
     Route: 064
     Dates: start: 20060816, end: 20070413

REACTIONS (2)
  - DRUG EXPOSURE DURING PREGNANCY [None]
  - NEONATAL LEUKAEMIA [None]
